FAERS Safety Report 13261245 (Version 1)
Quarter: 2017Q1

REPORT INFORMATION
  Report Type: Spontaneous
  Country: TR (occurrence: TR)
  Receive Date: 20170222
  Receipt Date: 20170222
  Transmission Date: 20170428
  Serious: Yes (Other)
  Sender: FDA-Public Use
  Company Number: TR-GLAXOSMITHKLINE-TR2017GSK025425

PATIENT
  Age: 35 Year
  Sex: Female

DRUGS (12)
  1. TOBRAMYCIN. [Suspect]
     Active Substance: TOBRAMYCIN
     Indication: ACANTHAMOEBA KERATITIS
     Dosage: (1 GTT,1 HR)
  2. ACYCLOVIR. [Suspect]
     Active Substance: ACYCLOVIR
     Indication: LACRIMATION INCREASED
  3. GOLDEN EYE (DIBROMPROPAMIDINE ISETHIONATE) [Suspect]
     Active Substance: DIBROMPROPAMIDINE ISETHIONATE
     Indication: ACANTHAMOEBA KERATITIS
     Dosage: UNK, QD
  4. NEOSPORIN [Suspect]
     Active Substance: BACITRACIN ZINC\NEOMYCIN SULFATE\POLYMYXIN B SULFATE
     Indication: ACANTHAMOEBA KERATITIS
  5. OFLOXACIN. [Suspect]
     Active Substance: OFLOXACIN
     Indication: EYE INFECTION
  6. ACYCLOVIR. [Suspect]
     Active Substance: ACYCLOVIR
     Indication: EYE PAIN
  7. OFLOXACIN. [Suspect]
     Active Substance: OFLOXACIN
     Indication: LACRIMATION INCREASED
     Dosage: 0.3 UNK, UNK
  8. OFLOXACIN. [Suspect]
     Active Substance: OFLOXACIN
     Indication: EYE PAIN
  9. DEXAMETHASONE. [Suspect]
     Active Substance: DEXAMETHASONE
     Indication: POSTOPERATIVE CARE
     Dosage: 0.1 %, BID
  10. MERCURIC OXIDE, YELLOW [Suspect]
     Active Substance: MERCURIC OXIDE
     Indication: ACANTHAMOEBA KERATITIS
     Dosage: 1 GTT,1 HR
  11. ITRASPOR [Suspect]
     Active Substance: ITRACONAZOLE
     Indication: ACANTHAMOEBA KERATITIS
     Dosage: 100 MG, 1X2
     Route: 048
  12. ATROPINE. [Suspect]
     Active Substance: ATROPINE
     Indication: ACANTHAMOEBA KERATITIS
     Dosage: 3 IN 1 D

REACTIONS (6)
  - Pneumonia streptococcal [Unknown]
  - Drug ineffective [Unknown]
  - Acanthamoeba keratitis [Unknown]
  - Corneal graft rejection [None]
  - Corneal perforation [None]
  - Condition aggravated [Unknown]
